FAERS Safety Report 8065845-8 (Version None)
Quarter: 2012Q1

REPORT INFORMATION
  Report Type: 
  Country: None (occurrence: None)
  Receive Date: 20120124
  Receipt Date: 20120113
  Transmission Date: 20120608
  Serious: Yes (Hospitalization)
  Sender: FDA-Public Use
  Company Number: BR-BRISTOL-MYERS SQUIBB COMPANY-16351231

PATIENT
  Age: 67 Year
  Sex: Male

DRUGS (1)
  1. ONGLYZA [Suspect]

REACTIONS (1)
  - PNEUMONIA [None]
